FAERS Safety Report 8809325 (Version 1)
Quarter: 2012Q4

REPORT INFORMATION
  Report Type: 
  Country: DE (occurrence: DE)
  Receive Date: 20120926
  Receipt Date: 20120926
  Transmission Date: 20130627
  Serious: Yes (Hospitalization)
  Sender: FDA-Public Use
  Company Number: DE-PFIZER INC-2012233533

PATIENT
  Age: 50 Year
  Sex: Female
  Weight: 45.6 kg

DRUGS (4)
  1. GENOTROPIN [Suspect]
     Indication: HYPOPITUITARISM
     Dosage: 0.4 mg, seven injections/week
     Route: 058
     Dates: start: 20031203
  2. BIVIOL [Concomitant]
     Indication: BLOOD LUTEINISING HORMONE DECREASED
     Dosage: UNK
     Dates: start: 20030122
  3. BIVIOL [Concomitant]
     Indication: BLOOD FOLLICLE STIMULATING HORMONE DECREASED
  4. BIVIOL [Concomitant]
     Indication: HYPOGONADISM FEMALE

REACTIONS (1)
  - Inflammation [Unknown]
